FAERS Safety Report 4978209-8 (Version None)
Quarter: 2006Q2

REPORT INFORMATION
  Report Type: 
  Country: None (occurrence: None)
  Receive Date: 20060417
  Receipt Date: 20060404
  Transmission Date: 20061013
  Serious: Yes (Hospitalization)
  Sender: FDA-Public Use
  Company Number: WAES 0604USA00518

PATIENT
  Age: 53 Year
  Sex: Male
  Weight: 95.709 kg

DRUGS (3)
  1. ZETIA [Suspect]
     Dosage: PO
     Route: 048
  2. BLINDED THERAPY [Suspect]
     Indication: PROSTATE CANCER
     Dosage: DAILY/PO
     Route: 048
     Dates: start: 20030916
  3. ATORVASTATIN CALCIUM [Concomitant]

REACTIONS (1)
  - BILE DUCT OBSTRUCTION [None]
